FAERS Safety Report 6232823-0 (Version None)
Quarter: 2009Q2

REPORT INFORMATION
  Report Type: 
  Country: None (occurrence: None)
  Receive Date: 20090612
  Receipt Date: 20090612
  Transmission Date: 20091009
  Serious: No
  Sender: FDA-Public Use
  Company Number: None

PATIENT
  Age: 29 Year
  Sex: Female
  Weight: 68.0396 kg

DRUGS (1)
  1. ZYRTEC [Suspect]
     Indication: SEASONAL ALLERGY
     Dosage: 10 MG. ONCE A DAY PO
     Route: 048
     Dates: start: 20090301, end: 20090604

REACTIONS (2)
  - PRURITUS [None]
  - WITHDRAWAL SYNDROME [None]
